FAERS Safety Report 9349583 (Version 1)
Quarter: 2013Q2

REPORT INFORMATION
  Report Type: Spontaneous
  Country: DE (occurrence: None)
  Receive Date: 20130611
  Receipt Date: 20130611
  Transmission Date: 20140414
  Serious: Yes (Other)
  Sender: FDA-Public Use
  Company Number: GER/GER/13/0029923

PATIENT
  Age: 37 Year
  Sex: Female
  Weight: 68 kg

DRUGS (2)
  1. CIPROFLOXACIN [Suspect]
     Indication: COLITIS
     Dates: start: 20130305, end: 20130316
  2. METRONIDAZOLE [Concomitant]

REACTIONS (2)
  - Depression [None]
  - Suicidal ideation [None]
